FAERS Safety Report 20181480 (Version 1)
Quarter: 2021Q4

REPORT INFORMATION
  Report Type: Spontaneous
  Country: US (occurrence: None)
  Receive Date: 20211213
  Receipt Date: 20211213
  Transmission Date: 20220303
  Serious: Yes (Hospitalization)
  Sender: FDA-Public Use
  Company Number: None

PATIENT
  Age: 56 Year
  Sex: Male
  Weight: 125.9 kg

DRUGS (1)
  1. VENCLEXTA [Suspect]
     Active Substance: VENETOCLAX
     Indication: Chronic lymphocytic leukaemia
     Dosage: FREQUENCY : DAILY;?
     Route: 048
     Dates: start: 20210329, end: 20211107

REACTIONS (6)
  - Palpitations [None]
  - Dizziness [None]
  - Pulmonary embolism [None]
  - Cardiomyopathy [None]
  - Arrhythmia [None]
  - Pericardial effusion [None]

NARRATIVE: CASE EVENT DATE: 20210917
